FAERS Safety Report 20367772 (Version 2)
Quarter: 2022Q1

REPORT INFORMATION
  Report Type: Spontaneous
  Country: US (occurrence: US)
  Receive Date: 20220124
  Receipt Date: 20220201
  Transmission Date: 20220423
  Serious: No
  Sender: FDA-Public Use
  Company Number: US-PURACAP-US-2022EPCSPO00049

PATIENT

DRUGS (1)
  1. DOXYCYCLINE HYCLATE [Suspect]
     Active Substance: DOXYCYCLINE HYCLATE
     Indication: Product used for unknown indication
     Route: 065
     Dates: start: 20211210

REACTIONS (4)
  - Swelling face [Unknown]
  - Burning sensation [Unknown]
  - Rash [Unknown]
  - Dysphagia [Unknown]

NARRATIVE: CASE EVENT DATE: 20211210
